FAERS Safety Report 16348840 (Version 3)
Quarter: 2019Q2

REPORT INFORMATION
  Report Type: Spontaneous
  Country: HU (occurrence: HU)
  Receive Date: 20190523
  Receipt Date: 20190531
  Transmission Date: 20190711
  Serious: Yes (Other)
  Sender: FDA-Public Use
  Company Number: HU-MYLANLABS-2019M1047749

PATIENT
  Age: 66 Year
  Sex: Female

DRUGS (7)
  1. AFINITOR [Suspect]
     Active Substance: EVEROLIMUS
     Indication: METASTASES TO LIVER
     Dosage: 10 MILLIGRAM, QD
     Route: 065
     Dates: start: 20171103
  2. LEUCOVORIN                         /00566701/ [Concomitant]
     Active Substance: LEUCOVORIN
     Indication: GASTROENTEROPANCREATIC NEUROENDOCRINE TUMOUR DISEASE
     Dosage: UNK
     Route: 065
     Dates: start: 20170628, end: 20170920
  3. FLUOROURACIL. [Suspect]
     Active Substance: FLUOROURACIL
     Indication: GASTROENTEROPANCREATIC NEUROENDOCRINE TUMOUR DISEASE
     Dosage: UNK
     Route: 065
     Dates: start: 20170628, end: 20170920
  4. SANDOSTATIN [Suspect]
     Active Substance: OCTREOTIDE ACETATE
     Dosage: 30 MG, UNK
     Route: 058
     Dates: start: 20171103
  5. AFINITOR [Suspect]
     Active Substance: EVEROLIMUS
     Dosage: 5 MILLIGRAM, QD
     Route: 065
     Dates: start: 20171117
  6. SANDOSTATIN [Suspect]
     Active Substance: OCTREOTIDE ACETATE
     Indication: PRODUCT USED FOR UNKNOWN INDICATION
     Dosage: UNK UNK, MONTHLY
     Route: 058
     Dates: start: 20170628
  7. OXALIPLATIN. [Suspect]
     Active Substance: OXALIPLATIN
     Indication: GASTROENTEROPANCREATIC NEUROENDOCRINE TUMOUR DISEASE
     Dosage: UNK
     Route: 065
     Dates: start: 20170628, end: 20170920

REACTIONS (6)
  - Malignant neoplasm progression [Recovering/Resolving]
  - Arthralgia [Unknown]
  - Stomatitis [Recovered/Resolved]
  - Metastases to liver [Recovering/Resolving]
  - Oedema peripheral [Unknown]
  - Diarrhoea [Recovered/Resolved]

NARRATIVE: CASE EVENT DATE: 20171117
